FAERS Safety Report 6312992-4 (Version None)
Quarter: 2009Q3

REPORT INFORMATION
  Report Type: 
  Country: None (occurrence: None)
  Receive Date: 20090814
  Receipt Date: 20090814
  Transmission Date: 20100115
  Serious: Yes (Other)
  Sender: FDA-Public Use
  Company Number: None

PATIENT
  Age: 49 Year
  Sex: Female
  Weight: 65.7716 kg

DRUGS (1)
  1. ACTONEL [Suspect]
     Indication: OSTEOPOROSIS
     Dosage: 1 TABLET MONTHLY PO
     Route: 048
     Dates: start: 20090717, end: 20090717

REACTIONS (13)
  - BONE PAIN [None]
  - CHEST PAIN [None]
  - FATIGUE [None]
  - GINGIVAL BLEEDING [None]
  - GINGIVAL PAIN [None]
  - HEADACHE [None]
  - IRRITABILITY [None]
  - JAW DISORDER [None]
  - MASS [None]
  - MYALGIA [None]
  - OROPHARYNGEAL PAIN [None]
  - PAIN IN JAW [None]
  - TOOTHACHE [None]
